FAERS Safety Report 4998004-3 (Version None)
Quarter: 2006Q2

REPORT INFORMATION
  Report Type: 
  Country: None (occurrence: None)
  Receive Date: 20060510
  Receipt Date: 20060503
  Transmission Date: 20061013
  Serious: Yes (Hospitalization)
  Sender: FDA-Public Use
  Company Number: FR-SANOFI-SYNTHELABO-A02200601169

PATIENT
  Age: 58 Year
  Sex: Male
  Weight: 65 kg

DRUGS (2)
  1. PLAQUENIL [Suspect]
     Indication: WHIPPLE'S DISEASE
     Dosage: 600 MG
     Route: 048
     Dates: start: 20050803, end: 20060130
  2. VIBRAMYCINE [Suspect]
     Indication: WHIPPLE'S DISEASE
     Dosage: 200 MG
     Route: 048
     Dates: start: 20050803, end: 20060130

REACTIONS (5)
  - AORTIC VALVE INCOMPETENCE [None]
  - ARTHRALGIA [None]
  - HEADACHE [None]
  - INFLAMMATION [None]
  - PYREXIA [None]
